FAERS Safety Report 16953983 (Version 1)
Quarter: 2019Q4

REPORT INFORMATION
  Report Type: Spontaneous
  Country: US (occurrence: US)
  Receive Date: 20191023
  Receipt Date: 20191023
  Transmission Date: 20200122
  Serious: No
  Sender: FDA-Public Use
  Company Number: US-ABBVIE-19K-163-2928121-00

PATIENT
  Sex: Female

DRUGS (1)
  1. ORILISSA [Suspect]
     Active Substance: ELAGOLIX SODIUM
     Indication: ENDOMETRIOSIS
     Route: 048

REACTIONS (8)
  - Arthralgia [Unknown]
  - Mood swings [Unknown]
  - Pain in extremity [Unknown]
  - Emotional disorder [Unknown]
  - Menstruation irregular [Unknown]
  - Anxiety [Unknown]
  - Pelvic pain [Recovered/Resolved]
  - Insomnia [Unknown]
